FAERS Safety Report 24004245 (Version 1)
Quarter: 2024Q2

REPORT INFORMATION
  Report Type: Report from Study
  Country: IT (occurrence: IT)
  Receive Date: 20240624
  Receipt Date: 20240624
  Transmission Date: 20240716
  Serious: Yes (Life-Threatening, Hospitalization, Other)
  Sender: FDA-Public Use
  Company Number: IT-ROCHE-2643858

PATIENT
  Age: 58 Year
  Sex: Male

DRUGS (10)
  1. OBINUTUZUMAB [Suspect]
     Active Substance: OBINUTUZUMAB
     Indication: Follicular lymphoma
     Dosage: NUMBER OF CYCLES RECEIVED (AT STUDY ENTRY): 2, LAST DOSE OF OBINUTUZUMAB WAS ADMINISTERED ON 06/MAY/
     Route: 042
     Dates: start: 20200206, end: 20210104
  2. OBINUTUZUMAB [Suspect]
     Active Substance: OBINUTUZUMAB
     Dosage: EIGHTH DOSE OF OBINUTUZUMAB
     Route: 042
     Dates: start: 20200708
  3. OBINUTUZUMAB [Suspect]
     Active Substance: OBINUTUZUMAB
     Dosage: INDUCTION PHASE- DAY 1, 8, 15 OF CYCLE 1 AN DAY 1 OF CYCLES 2-6 OR 2-8?LAST DOSE OF DRUG ADMINISTERE
     Route: 042
     Dates: start: 20200131
  4. OBINUTUZUMAB [Suspect]
     Active Substance: OBINUTUZUMAB
     Route: 042
  5. CYCLOPHOSPHAMIDE [Concomitant]
     Active Substance: CYCLOPHOSPHAMIDE
     Dosage: FIRST DOSE ON 31-JAN-2020, SIXTH DOSE ON 28-MAY-2020 EVERY 21 DAYS.
     Dates: start: 20200131
  6. DOXORUBICIN [Concomitant]
     Active Substance: DOXORUBICIN
     Dosage: FIRST DOSE ON 31-JAN-2020, SIXTH DOSE ON 28-MAY-2020 EVERY 21 DAYS.
     Dates: start: 20200131
  7. PREDNISONE [Concomitant]
     Active Substance: PREDNISONE
     Dosage: FIRST DOSE ON 31-JAN-2020, SIXTH DOSE ON 28-MAY-2020 EVERY 21 DAYS.
     Dates: start: 20200131
  8. PREDNISONE [Concomitant]
     Active Substance: PREDNISONE
     Dates: start: 20200220
  9. VINCRISTINE [Concomitant]
     Active Substance: VINCRISTINE
     Dosage: FIRST DOSE ON 31-JAN-2020, SIXTH DOSE ON 28-MAY-2020 EVERY 21 DAYS.
     Dates: start: 20200131
  10. ENOXAPARIN [Concomitant]
     Active Substance: ENOXAPARIN
     Dates: start: 20200312

REACTIONS (10)
  - COVID-19 pneumonia [Recovered/Resolved]
  - COVID-19 [Recovered/Resolved with Sequelae]
  - Axillary vein thrombosis [Recovered/Resolved]
  - Neutropenia [Recovered/Resolved]
  - Neutropenia [Recovered/Resolved]
  - Pain in extremity [Recovered/Resolved]
  - Leukopenia [Recovered/Resolved]
  - Muscle spasms [Recovered/Resolved]
  - Myalgia [Recovered/Resolved]
  - Post-acute COVID-19 syndrome [Recovered/Resolved]

NARRATIVE: CASE EVENT DATE: 20200318
